APPROVED DRUG PRODUCT: CLOPIDOGREL BISULFATE
Active Ingredient: CLOPIDOGREL BISULFATE
Strength: EQ 300MG BASE
Dosage Form/Route: TABLET;ORAL
Application: A205345 | Product #002 | TE Code: AB
Applicant: HETERO LABS LTD UNIT V
Approved: Aug 4, 2023 | RLD: No | RS: No | Type: RX